FAERS Safety Report 5193553-X (Version None)
Quarter: 2006Q4

REPORT INFORMATION
  Report Type: 
  Country: None (occurrence: None)
  Receive Date: 20061228
  Receipt Date: 20060808
  Transmission Date: 20070319
  Serious: No
  Sender: FDA-Public Use
  Company Number: US-GLAXOSMITHKLINE-A0615776A

PATIENT
  Age: 79 Year
  Sex: Female

DRUGS (7)
  1. FLONASE [Suspect]
     Route: 045
     Dates: start: 20060527
  2. BENICAR [Concomitant]
  3. NORVASC [Concomitant]
  4. SYNTHROID [Concomitant]
  5. PREVACID [Concomitant]
  6. CALCIUM [Concomitant]
  7. FOSAMAX [Concomitant]

REACTIONS (1)
  - EPISTAXIS [None]
